FAERS Safety Report 23158208 (Version 1)
Quarter: 2023Q4

REPORT INFORMATION
  Report Type: Spontaneous
  Country: TN (occurrence: TN)
  Receive Date: 20231108
  Receipt Date: 20231108
  Transmission Date: 20240110
  Serious: Yes (Other)
  Sender: FDA-Public Use
  Company Number: TN-STRIDES ARCOLAB LIMITED-2023SP016582

PATIENT
  Sex: Male

DRUGS (8)
  1. FUROSEMIDE [Suspect]
     Active Substance: FUROSEMIDE
     Indication: Product used for unknown indication
     Dosage: UNK (PATIENT MOTHER RECEIVED DURING PREGNANCY)
     Route: 064
  2. AMOXICILLIN\CLAVULANIC ACID [Suspect]
     Active Substance: AMOXICILLIN\CLAVULANIC ACID
     Indication: Product used for unknown indication
     Dosage: UNK (PATIENT MOTHER RECEIVED DURING PREGNANCY)
     Route: 064
  3. ACETAMINOPHEN [Suspect]
     Active Substance: ACETAMINOPHEN
     Indication: Product used for unknown indication
     Dosage: UNK (PATIENT MOTHER RECEIVED DURING PREGNANCY)
     Route: 064
  4. PHLOROGLUCINOL [Suspect]
     Active Substance: PHLOROGLUCINOL
     Indication: Product used for unknown indication
     Dosage: UNK (PATIENT MOTHER RECEIVED DURING PREGNANCY)
     Route: 064
  5. NICARDIPINE [Suspect]
     Active Substance: NICARDIPINE
     Indication: Product used for unknown indication
     Dosage: UNK (PATIENT MOTHER RECEIVED DURING PREGNANCY)
     Route: 064
  6. BUPIVACAINE [Suspect]
     Active Substance: BUPIVACAINE
     Indication: Product used for unknown indication
     Dosage: UNK (PATIENT MOTHER RECEIVED 10 MG DURING PREGNANCY)
     Route: 064
  7. SUFENTANIL HYDROCHLORIDE [Suspect]
     Active Substance: SUFENTANIL HYDROCHLORIDE
     Indication: Product used for unknown indication
     Dosage: UNK (PATIENT MOTHER RECEIVED 2.5 MICROGRAM DURING PREGNANCY)
     Route: 064
  8. MORPHINE [Suspect]
     Active Substance: MORPHINE
     Indication: Product used for unknown indication
     Dosage: UNK (PATIENT RECEIVED 100 MICROGRAM)
     Route: 064

REACTIONS (2)
  - Foetal distress syndrome [Unknown]
  - Foetal exposure during pregnancy [Unknown]
